FAERS Safety Report 5403494-8 (Version None)
Quarter: 2007Q3

REPORT INFORMATION
  Report Type: 
  Country: None (occurrence: None)
  Receive Date: 20070713
  Receipt Date: 20070423
  Transmission Date: 20080115
  Serious: Yes (Hospitalization, Other)
  Sender: FDA-Public Use
  Company Number: US-JNJFOC-20060601730

PATIENT
  Age: 18 Year
  Sex: Female

DRUGS (2)
  1. ORTHO EVRA [Suspect]
     Indication: DYSMENORRHOEA
     Dosage: TRANSDERMAL
     Route: 062
     Dates: start: 20021101, end: 20031201
  2. ORTHO EVRA [Suspect]
     Indication: DYSMENORRHOEA
     Dosage: TRANSDERMAL
     Route: 062
     Dates: start: 20020901

REACTIONS (2)
  - DEEP VEIN THROMBOSIS [None]
  - HEADACHE [None]
